FAERS Safety Report 8524827-X (Version None)
Quarter: 2012Q3

REPORT INFORMATION
  Report Type: 
  Country: None (occurrence: None)
  Receive Date: 20120720
  Receipt Date: 20120717
  Transmission Date: 20120928
  Serious: Yes (Death, Other)
  Sender: FDA-Public Use
  Company Number: NL-GLAXOSMITHKLINE-B0815940A

PATIENT
  Age: 33 Week

DRUGS (1)
  1. PAROXETINE [Suspect]
     Indication: AGORAPHOBIA
     Dosage: 10MG PER DAY
     Route: 064

REACTIONS (2)
  - FOETAL DEATH [None]
  - FOETAL EXPOSURE DURING PREGNANCY [None]
